FAERS Safety Report 8004845-0 (Version None)
Quarter: 2011Q4

REPORT INFORMATION
  Report Type: 
  Country: None (occurrence: None)
  Receive Date: 20111223
  Receipt Date: 20111223
  Transmission Date: 20120403
  Serious: Yes (Life-Threatening, Other)
  Sender: FDA-Public Use
  Company Number: None

PATIENT
  Age: 29 Year
  Sex: Female
  Weight: 63.502 kg

DRUGS (1)
  1. CYMBALTA [Suspect]
     Indication: ANXIETY
     Dosage: 50MG
     Route: 048
     Dates: start: 20110825, end: 20111201

REACTIONS (3)
  - FEELING ABNORMAL [None]
  - AMNESIA [None]
  - SUICIDE ATTEMPT [None]
